FAERS Safety Report 17197688 (Version 2)
Quarter: 2020Q1

REPORT INFORMATION
  Report Type: Spontaneous
  Country: US (occurrence: US)
  Receive Date: 20191224
  Receipt Date: 20200106
  Transmission Date: 20200409
  Serious: Yes (Hospitalization)
  Sender: FDA-Public Use
  Company Number: US-TEVA-2019-US-1156619

PATIENT
  Age: 7 Year
  Sex: Female
  Weight: 31 kg

DRUGS (2)
  1. GUANFACINE. [Concomitant]
     Active Substance: GUANFACINE
     Dosage: NIGHTLY ADMINISTRATION
     Route: 048
  2. PALIPERIDONE. [Suspect]
     Active Substance: PALIPERIDONE
     Dosage: 3 MILLIGRAM DAILY;
     Route: 048

REACTIONS (8)
  - Sinus tachycardia [Recovering/Resolving]
  - Mydriasis [Recovered/Resolved]
  - Product dispensing error [Unknown]
  - Electrocardiogram QT prolonged [Recovered/Resolved]
  - Product administered to patient of inappropriate age [Unknown]
  - Dystonia [Recovered/Resolved]
  - Flushing [Recovered/Resolved]
  - Accidental exposure to product [Unknown]
